FAERS Safety Report 8812720 (Version 2)
Quarter: 2013Q2

REPORT INFORMATION
  Report Type: Report from Study
  Country: DE (occurrence: DE)
  Receive Date: 20120927
  Receipt Date: 20130404
  Transmission Date: 20140414
  Serious: Yes (Other)
  Sender: FDA-Public Use
  Company Number: DE-ABBOTT-12P-062-0983914-00

PATIENT
  Age: 69 Year
  Sex: Female
  Weight: 76 kg

DRUGS (4)
  1. HUMIRA [Suspect]
     Indication: RHEUMATOID ARTHRITIS
     Route: 058
     Dates: start: 20100329, end: 201202
  2. HUMIRA [Suspect]
     Route: 058
     Dates: start: 201203
  3. METHOTREXATE [Concomitant]
     Indication: PRODUCT USED FOR UNKNOWN INDICATION
  4. METHOTREXATE [Concomitant]
     Dates: start: 201205

REACTIONS (4)
  - Haematoma [Unknown]
  - Wrist surgery [Unknown]
  - Localised infection [Unknown]
  - Limb injury [Unknown]
